FAERS Safety Report 6402418-4 (Version None)
Quarter: 2009Q4

REPORT INFORMATION
  Report Type: 
  Country: None (occurrence: None)
  Receive Date: 20091013
  Receipt Date: 20091002
  Transmission Date: 20100525
  Serious: Yes (Hospitalization)
  Sender: FDA-Public Use
  Company Number: 001404

PATIENT
  Sex: Female
  Weight: 58 kg

DRUGS (14)
  1. ISOSORBIDE MONONITRATE [Suspect]
     Indication: PRINZMETAL ANGINA
     Dosage: 30 MG QD ORAL
     Route: 048
     Dates: start: 20090609
  2. NITROGLYCERIN [Concomitant]
  3. SYNTHROID [Concomitant]
  4. OMEPRAZOLE [Concomitant]
  5. SKELAXIN [Concomitant]
  6. GABAPENTIN [Concomitant]
  7. ULTRACET [Concomitant]
  8. PRAVASTATIN [Concomitant]
  9. ZYRTEC [Concomitant]
  10. CYMBALTA [Concomitant]
  11. OXYBUTYNIN CHLORIDE [Concomitant]
  12. AMLODIPINE W/ VALSARTAN [Concomitant]
  13. DARVOCET /00220901/ [Concomitant]
  14. HYDROCODONE W/ ACETYLSALICYLIC ACID [Concomitant]

REACTIONS (9)
  - ABDOMINAL DISCOMFORT [None]
  - ANGINA PECTORIS [None]
  - CELLULITIS [None]
  - DYSPEPSIA [None]
  - FALL [None]
  - HEPATIC STEATOSIS [None]
  - INCORRECT STORAGE OF DRUG [None]
  - LIMB INJURY [None]
  - SCAR [None]
